FAERS Safety Report 15327145 (Version 2)
Quarter: 2018Q3

REPORT INFORMATION
  Report Type: Spontaneous
  Country: US (occurrence: US)
  Receive Date: 20180828
  Receipt Date: 20180926
  Transmission Date: 20181010
  Serious: No
  Sender: FDA-Public Use
  Company Number: US-VIFOR (INTERNATIONAL) INC.-VIT-2018-08012

PATIENT
  Age: 70 Year
  Sex: Male
  Weight: 99.7 kg

DRUGS (14)
  1. METFORMIN HCL [Concomitant]
     Active Substance: METFORMIN HYDROCHLORIDE
  2. METOPROLOL TARTRATE. [Concomitant]
     Active Substance: METOPROLOL TARTRATE
  3. FENOFIBRIC ACID. [Concomitant]
     Active Substance: FENOFIBRIC ACID
  4. TAMSULOSIN HCL [Concomitant]
     Active Substance: TAMSULOSIN HYDROCHLORIDE
  5. VELTASSA [Suspect]
     Active Substance: PATIROMER
     Indication: HYPERKALAEMIA
     Route: 048
     Dates: start: 20180803
  6. VITAMIN D3 [Concomitant]
     Active Substance: CHOLECALCIFEROL
  7. LOVASTATIN. [Concomitant]
     Active Substance: LOVASTATIN
  8. TRULICITY [Concomitant]
     Active Substance: DULAGLUTIDE
  9. DUTASTERIDE. [Concomitant]
     Active Substance: DUTASTERIDE
  10. ASPIR 81 [Concomitant]
  11. GLIPIZIDE. [Concomitant]
     Active Substance: GLIPIZIDE
  12. VASCEPA [Concomitant]
     Active Substance: ICOSAPENT ETHYL
  13. CYANOCOBALAMIN. [Concomitant]
     Active Substance: CYANOCOBALAMIN
  14. FARXIGA [Concomitant]
     Active Substance: DAPAGLIFLOZIN PROPANEDIOL

REACTIONS (3)
  - Constipation [Recovered/Resolved]
  - Product taste abnormal [Unknown]
  - Diarrhoea [Recovered/Resolved]

NARRATIVE: CASE EVENT DATE: 201808
